FAERS Safety Report 6726291-X (Version None)
Quarter: 2010Q2

REPORT INFORMATION
  Report Type: 
  Country: None (occurrence: None)
  Receive Date: 20100514
  Receipt Date: 20100507
  Transmission Date: 20101027
  Serious: Yes (Death)
  Sender: FDA-Public Use
  Company Number: A0780802A

PATIENT
  Age: 51 Year
  Sex: Male

DRUGS (2)
  1. AVANDAMET [Suspect]
     Route: 048
     Dates: start: 20050101, end: 20050301
  2. AVANDIA [Suspect]
     Route: 048
     Dates: start: 20050301, end: 20070407

REACTIONS (2)
  - DEATH [None]
  - MYOCARDIAL INFARCTION [None]
